FAERS Safety Report 4622532-3 (Version None)
Quarter: 2005Q1

REPORT INFORMATION
  Report Type: 
  Country: None (occurrence: None)
  Receive Date: 20050317
  Receipt Date: 20040611
  Transmission Date: 20050727
  Serious: Yes (Hospitalization)
  Sender: FDA-Public Use
  Company Number: PHEH2004US06424

PATIENT
  Age: 40 Year
  Sex: Female

DRUGS (3)
  1. TRILEPTAL [Suspect]
     Indication: BIPOLAR DISORDER
     Dosage: ORAL
     Route: 048
     Dates: start: 20031201, end: 20040201
  2. GABITRIL [Concomitant]
  3. TEMAZEPAM [Concomitant]

REACTIONS (3)
  - HYPONATRAEMIA [None]
  - MIGRAINE [None]
  - VOMITING [None]
